FAERS Safety Report 8588019-0 (Version None)
Quarter: 2012Q3

REPORT INFORMATION
  Report Type: 
  Country: None (occurrence: None)
  Receive Date: 20120813
  Receipt Date: 20120806
  Transmission Date: 20120928
  Serious: Yes (Congenital Anomaly)
  Sender: FDA-Public Use
  Company Number: JP-MSD-2012SP036331

PATIENT

DRUGS (12)
  1. PEGINTERFERON ALFA-2B [Suspect]
     Dosage: 1.5 MICROGRAM PER KILOGRAM, UNK
     Route: 058
     Dates: start: 20120711
  2. REBETOL [Suspect]
     Indication: HEPATITIS C
     Dosage: 600 MG, QD
     Route: 048
     Dates: start: 20120417, end: 20120612
  3. TELAVIC [Suspect]
     Indication: HEPATITIS C
     Dosage: 1500 MG, QD,CUMULATIVE DOSE 3000 MG
     Route: 048
     Dates: start: 20120417, end: 20120423
  4. BASEN [Concomitant]
     Indication: DIABETES MELLITUS
     Dosage: 0.9 MG, QD
     Route: 048
  5. REBETOL [Suspect]
     Dosage: 200 UNK, UNK
     Route: 048
     Dates: start: 20120711
  6. TELAVIC [Suspect]
     Dosage: 2250 MG, QD,CUMULATIVE DOSE 3000 MG
     Route: 048
     Dates: start: 20120424, end: 20120626
  7. PEGINTERFERON ALFA-2B [Suspect]
     Indication: HEPATITIS C
     Dosage: 1.5 MICROGRAM PER KILOGRAM, QW
     Route: 058
     Dates: start: 20120417, end: 20120626
  8. PEGINTERFERON ALFA-2B [Suspect]
     Dosage: 1.2 MICROGRAM PER KILOGRAM, UNK
     Route: 058
     Dates: start: 20120627, end: 20120710
  9. REBETOL [Suspect]
     Dosage: 400 MG, QD
     Route: 048
     Dates: start: 20120613, end: 20120619
  10. TELAVIC [Suspect]
     Dosage: 1500 UNK, UNK,CUMULATIVE DOSE 3000 MG
     Route: 048
     Dates: start: 20120627, end: 20120703
  11. TELAVIC [Suspect]
     Dosage: 750 UNK, UNK,CUMULATIVE DOSE 3000 MG
     Route: 048
     Dates: start: 20120704, end: 20120710
  12. LOXOPROFEN [Concomitant]
     Dosage: 60 MG, QD
     Route: 048
     Dates: start: 20120418, end: 20120418

REACTIONS (1)
  - BLOOD URIC ACID INCREASED [None]
